FAERS Safety Report 7832651-6 (Version None)
Quarter: 2011Q4

REPORT INFORMATION
  Report Type: 
  Country: None (occurrence: None)
  Receive Date: 20111024
  Receipt Date: 20111010
  Transmission Date: 20120403
  Serious: No
  Sender: FDA-Public Use
  Company Number: US-BIOGENIDEC-2011BI038603

PATIENT
  Age: 65 Year
  Sex: Female

DRUGS (2)
  1. TYSABRI [Suspect]
     Indication: MULTIPLE SCLEROSIS
     Route: 042
     Dates: start: 20080519
  2. MEDICATION (NOS) [Concomitant]
     Indication: HYPERTENSION

REACTIONS (4)
  - ASTHENIA [None]
  - OEDEMA PERIPHERAL [None]
  - FALL [None]
  - VIRAL INFECTION [None]
